FAERS Safety Report 9378015 (Version 1)
Quarter: 2013Q3

REPORT INFORMATION
  Report Type: Spontaneous
  Country: US (occurrence: US)
  Receive Date: 20130701
  Receipt Date: 20130701
  Transmission Date: 20140515
  Serious: No
  Sender: FDA-Public Use
  Company Number: US-PFIZER INC-2013190472

PATIENT
  Age: 59 Year
  Sex: Female
  Weight: 113 kg

DRUGS (2)
  1. LEVOTHYROXINE SODIUM [Suspect]
     Indication: THYROID DISORDER
     Dosage: 200 UG, 1X/DAY
     Dates: start: 201305, end: 2013
  2. SYNTHROID [Suspect]
     Indication: THYROID DISORDER
     Dosage: 200 UG, 1X/DAY
     Dates: start: 201306

REACTIONS (1)
  - Drug ineffective [Unknown]
